FAERS Safety Report 5515217-2 (Version None)
Quarter: 2007Q4

REPORT INFORMATION
  Report Type: 
  Country: None (occurrence: None)
  Receive Date: 20071109
  Receipt Date: 20071102
  Transmission Date: 20080405
  Serious: Yes (Other)
  Sender: FDA-Public Use
  Company Number: CHPA2007US11737

PATIENT
  Age: 43 Year
  Sex: Male

DRUGS (3)
  1. NICOTINE [Suspect]
     Indication: SMOKING CESSATION THERAPY
     Dosage: 21 MG, QD, TRANSDERMAL
     Route: 062
     Dates: start: 20071031
  2. ALCOHOL ^BEER^ (ETHANOL) [Concomitant]
  3. ANTIHISTAMINES (NO INGREDIENTS/SUBSTANCES) [Concomitant]

REACTIONS (7)
  - ALCOHOL ABUSE [None]
  - CONVULSION [None]
  - FALL [None]
  - MOANING [None]
  - PALLOR [None]
  - TREATMENT NONCOMPLIANCE [None]
  - TREMOR [None]
